FAERS Safety Report 16101746 (Version 2)
Quarter: 2019Q4

REPORT INFORMATION
  Report Type: Spontaneous
  Country: CN (occurrence: CN)
  Receive Date: 20190321
  Receipt Date: 20191030
  Transmission Date: 20200122
  Serious: Yes (Hospitalization, Other)
  Sender: FDA-Public Use
  Company Number: CN-ELI_LILLY_AND_COMPANY-CN201903010271

PATIENT
  Sex: Female

DRUGS (2)
  1. HUMULIN 70/30 [Suspect]
     Active Substance: INSULIN HUMAN
     Indication: DIABETES MELLITUS
     Dosage: 24 IU, EACH MORNING
     Route: 058
     Dates: start: 2013
  2. HUMULIN 70/30 [Suspect]
     Active Substance: INSULIN HUMAN
     Dosage: 22 IU, EACH EVENING
     Route: 058
     Dates: start: 2013

REACTIONS (8)
  - Retinal detachment [Unknown]
  - Visual impairment [Unknown]
  - Product dose omission [Unknown]
  - Cataract [Unknown]
  - Blindness unilateral [Unknown]
  - Gastrointestinal disorder [Unknown]
  - Blood pressure increased [Unknown]
  - Eye pain [Unknown]

NARRATIVE: CASE EVENT DATE: 2016
